FAERS Safety Report 5262632-0 (Version None)
Quarter: 2007Q1

REPORT INFORMATION
  Report Type: 
  Country: None (occurrence: None)
  Receive Date: 20070307
  Receipt Date: 20070222
  Transmission Date: 20070707
  Serious: No
  Sender: FDA-Public Use
  Company Number: 2007-153569-NL

PATIENT
  Age: 23 Year
  Sex: Female

DRUGS (2)
  1. NUVARING [Suspect]
     Dosage: DF, VAGINAL
     Route: 067
     Dates: start: 20061007, end: 20061201
  2. LAMOTRIGINE [Concomitant]

REACTIONS (2)
  - GRAND MAL CONVULSION [None]
  - MYOCLONIC EPILEPSY [None]
